FAERS Safety Report 10842793 (Version 1)
Quarter: 2015Q1

REPORT INFORMATION
  Report Type: Report from Study
  Country: US (occurrence: US)
  Receive Date: 20150220
  Receipt Date: 20150220
  Transmission Date: 20150721
  Serious: No
  Sender: FDA-Public Use
  Company Number: US-ABBVIE-14P-163-1274491-00

PATIENT
  Sex: Female

DRUGS (2)
  1. HUMIRA [Suspect]
     Active Substance: ADALIMUMAB
     Indication: PSORIASIS
     Dates: start: 2006
  2. HUMIRA [Suspect]
     Active Substance: ADALIMUMAB
     Indication: RHEUMATOID ARTHRITIS

REACTIONS (5)
  - Device issue [Unknown]
  - Incorrect dose administered [Unknown]
  - Injection site pain [Not Recovered/Not Resolved]
  - Psoriasis [Recovering/Resolving]
  - Drug effect delayed [Unknown]

NARRATIVE: CASE EVENT DATE: 2006
